FAERS Safety Report 21465703 (Version 2)
Quarter: 2022Q4

REPORT INFORMATION
  Report Type: Report from Study
  Country: IE (occurrence: None)
  Receive Date: 20221017
  Receipt Date: 20221021
  Transmission Date: 20230113
  Serious: Yes (Other)
  Sender: FDA-Public Use
  Company Number: IE-Merck Healthcare KGaA-9357564

PATIENT
  Sex: Female

DRUGS (3)
  1. MAVENCLAD [Suspect]
     Active Substance: CLADRIBINE
     Indication: Multiple sclerosis
     Dosage: YEAR ONE WEEK ONE THERAPY: 2 TABLETS ON DAYS 1-3 AND 1 TABLET ON DAYS 4-5
     Route: 048
     Dates: start: 20190429
  2. MAVENCLAD [Suspect]
     Active Substance: CLADRIBINE
     Dosage: YEAR ONE WEEK FIVE THERAPY: 2 TABLETS ON DAYS 1-3 AND 1 TABLET ON DAYS 4-5
     Route: 048
     Dates: start: 20190527
  3. MAVENCLAD [Suspect]
     Active Substance: CLADRIBINE
     Dosage: YEAR TWO WEEK ONE THERAPY?THERAPY START DATE- 10-OCT-2022
     Route: 048

REACTIONS (2)
  - Gastric ulcer [Unknown]
  - Condition aggravated [Unknown]
